FAERS Safety Report 11199062 (Version 1)
Quarter: 2015Q2

REPORT INFORMATION
  Report Type: Spontaneous
  Country: US (occurrence: US)
  Receive Date: 20150618
  Receipt Date: 20150618
  Transmission Date: 20150821
  Serious: No
  Sender: FDA-Public Use
  Company Number: US-009507513-1506USA001884

PATIENT
  Sex: Female

DRUGS (3)
  1. EMEND [Suspect]
     Active Substance: APREPITANT
     Indication: NAUSEA
     Dosage: 125 MG, QW
     Route: 048
     Dates: start: 20150417, end: 2015
  2. EMEND [Suspect]
     Active Substance: APREPITANT
     Dosage: 80 MG, QW
     Route: 048
     Dates: start: 20150418, end: 2015
  3. EMEND [Suspect]
     Active Substance: APREPITANT
     Dosage: 80 MG, QW
     Route: 048
     Dates: start: 20150419, end: 2015

REACTIONS (1)
  - Abdominal pain upper [Unknown]

NARRATIVE: CASE EVENT DATE: 2015
